FAERS Safety Report 13761613 (Version 3)
Quarter: 2017Q3

REPORT INFORMATION
  Report Type: Spontaneous
  Country: RU (occurrence: RU)
  Receive Date: 20170718
  Receipt Date: 20170727
  Transmission Date: 20171127
  Serious: Yes (Life-Threatening, Hospitalization, Other)
  Sender: FDA-Public Use
  Company Number: RU-ASTRAZENECA-2017SE72623

PATIENT
  Age: 58 Year
  Sex: Female
  Weight: 90 kg

DRUGS (10)
  1. LOSARTAN. [Concomitant]
     Active Substance: LOSARTAN
     Dates: start: 2017
  2. BRILINTA [Suspect]
     Active Substance: TICAGRELOR
     Indication: MYOCARDIAL INFARCTION
     Route: 048
     Dates: start: 20161201
  3. ATORVASTATIN [Concomitant]
     Active Substance: ATORVASTATIN
     Dates: start: 201612
  4. THROMBO ASS [Concomitant]
     Active Substance: ASPIRIN
     Dates: start: 2017
  5. AMLODIPINE [Concomitant]
     Active Substance: AMLODIPINE BESYLATE
     Dates: start: 2017
  6. GALVUS [Concomitant]
     Active Substance: VILDAGLIPTIN
     Dates: start: 201704
  7. BISOPROLOL [Concomitant]
     Active Substance: BISOPROLOL
     Dates: start: 2017
  8. PENTOXIFYLLINE. [Concomitant]
     Active Substance: PENTOXIFYLLINE
     Dates: start: 2017
  9. DIABETON MB [Concomitant]
     Active Substance: GLICLAZIDE
     Dates: start: 201612
  10. PHENYBUTUM [Concomitant]
     Dates: start: 2017

REACTIONS (5)
  - Blood pressure increased [Recovered/Resolved]
  - Vascular stent occlusion [Recovered/Resolved]
  - Vascular stenosis [Unknown]
  - Myocardial infarction [Recovered/Resolved]
  - Transient ischaemic attack [Recovered/Resolved]

NARRATIVE: CASE EVENT DATE: 20170512
